APPROVED DRUG PRODUCT: KYNAMRO
Active Ingredient: MIPOMERSEN SODIUM
Strength: 200MG/ML (200MG/ML)
Dosage Form/Route: SOLUTION;SUBCUTANEOUS
Application: N203568 | Product #001
Applicant: KASTLE THERAPEUTICS LLC
Approved: Jan 29, 2013 | RLD: Yes | RS: No | Type: DISCN

PATENTS:
Patent 7511131 | Expires: Jan 29, 2027